FAERS Safety Report 26112649 (Version 1)
Quarter: 2025Q4

REPORT INFORMATION
  Report Type: Spontaneous
  Country: CN (occurrence: CN)
  Receive Date: 20251202
  Receipt Date: 20251202
  Transmission Date: 20260119
  Serious: Yes (Hospitalization)
  Sender: OTSUKA
  Company Number: CN-MMM-Otsuka-M2FAYR81

PATIENT
  Age: 68 Year
  Sex: Female

DRUGS (1)
  1. SAMSCA [Suspect]
     Active Substance: TOLVAPTAN
     Indication: Electrolyte substitution therapy
     Dosage: UNK
     Dates: start: 20251106, end: 20251112

REACTIONS (5)
  - Anuria [Recovering/Resolving]
  - Pain [Recovering/Resolving]
  - Dysuria [Recovering/Resolving]
  - Lethargy [Recovering/Resolving]
  - Seizure [Recovering/Resolving]

NARRATIVE: CASE EVENT DATE: 20251112
